FAERS Safety Report 11167608 (Version 1)
Quarter: 2015Q2

REPORT INFORMATION
  Report Type: Spontaneous
  Country: US (occurrence: None)
  Receive Date: 20150603
  Receipt Date: 20150603
  Transmission Date: 20150821
  Serious: Yes (Hospitalization, Other)
  Sender: FDA-Public Use
  Company Number: 2015-11428

PATIENT
  Age: 84 Year
  Sex: Female
  Weight: 64.4 kg

DRUGS (10)
  1. METFORMIN [Concomitant]
     Active Substance: METFORMIN HYDROCHLORIDE
  2. TOPROL (METOPROLOL SUCCINATE) [Concomitant]
  3. ASPIRIN (ACETYLSALICYLIC ACID) [Concomitant]
     Active Substance: ASPIRIN
  4. NORVASC [Concomitant]
     Active Substance: AMLODIPINE BESYLATE
  5. EYLEA [Suspect]
     Active Substance: AFLIBERCEPT
     Indication: MACULAR DEGENERATION
     Dosage: UNK, OD, INTRAOCULAR
     Route: 031
     Dates: start: 20150410
  6. LASIX [Concomitant]
     Active Substance: FUROSEMIDE
  7. OCUGUARD (ACETYLCYSTEINE, ASCORBIC ACID, BETACAROTENE, BIOFLAVONOIDS, CHROMIC CHLORIDE, GLUTATHIONE, QUERCETIN DIHYDRATE, RIBOFLAVIN, RUTOSIDE, SELENIUM, TAURINE, TOCOPHEROL, VACCINIUM MYRTILLUS FRUIT, SINC PICOLINATE) [Concomitant]
  8. COZAAR (LOSARTAN POTASSIUM) [Concomitant]
  9. LUTEIN (XANTOFYL) [Concomitant]
  10. AMARYL (GLIMEPRIDE) [Concomitant]

REACTIONS (2)
  - Hospitalisation [None]
  - Depression [None]

NARRATIVE: CASE EVENT DATE: 20150523
